FAERS Safety Report 7632474 (Version 4)
Quarter: 2012Q4

REPORT INFORMATION
  Report Type: 
  Country: US (occurrence: US)
  Receive Date: 20101018
  Receipt Date: 20121011
  Transmission Date: 20130627
  Serious: Yes (Hospitalization)
  Sender: FDA-Public Use
  Company Number: US-BAYER-201036919NA

PATIENT
  Age: 43 Year
  Sex: Female
  Weight: 84 kg

DRUGS (9)
  1. YASMIN [Suspect]
     Indication: ORAL CONTRACEPTION
     Dosage: UNK UNK, UNK
     Route: 048
     Dates: start: 2004, end: 2006
  2. LEXAPRO [Concomitant]
     Indication: DEPRESSION
     Dosage: UNK
     Route: 048
     Dates: start: 2006, end: 2007
  3. MULTIVITAMIN [Concomitant]
     Route: 048
  4. TEA, GREEN [Concomitant]
     Route: 048
  5. CHEWABLE ANTACID [Concomitant]
     Route: 048
  6. CHILDRENS CHEWABLE VITAMINS [Concomitant]
     Route: 048
  7. CIPROFLOXACIN [Concomitant]
     Dosage: 500 mg, BID
     Dates: start: 20060920
  8. ANTIBIOTICS [Concomitant]
     Dosage: UNK
     Dates: start: 1999
  9. IBUPROFEN [Concomitant]

REACTIONS (3)
  - Pulmonary embolism [None]
  - Gallbladder disorder [Unknown]
  - Cholecystitis [Unknown]
